FAERS Safety Report 21039770 (Version 1)
Quarter: 2022Q3

REPORT INFORMATION
  Report Type: Spontaneous
  Country: DE (occurrence: DE)
  Receive Date: 20220704
  Receipt Date: 20220704
  Transmission Date: 20221027
  Serious: Yes (Congenital Anomaly, Other)
  Sender: FDA-Public Use
  Company Number: DE-EMBRYOTOX-202100436

PATIENT
  Age: 1 Day
  Sex: Male
  Weight: 3.69 kg

DRUGS (5)
  1. OLANZAPINE [Suspect]
     Active Substance: OLANZAPINE
     Indication: Anxiety disorder
     Dosage: 5 MG, DAILY
     Route: 064
     Dates: start: 20201129, end: 20210909
  2. SERTRALINE [Suspect]
     Active Substance: SERTRALINE HYDROCHLORIDE
     Indication: Depression
     Dosage: 150 MG, DAILY
     Route: 064
     Dates: start: 20201129, end: 20210909
  3. COMIRNATY [Concomitant]
     Active Substance: TOZINAMERAN
     Indication: COVID-19 immunisation
     Dosage: UNK, UNKNOWN
     Route: 064
     Dates: start: 20210729, end: 20210729
  4. BOOSTRIX [Concomitant]
     Active Substance: TETANUS TOXOID, REDUCED DIPHTHERIA TOXOID AND ACELLULAR PERTUSSIS VACCINE, ADSORBED ANTIGENS
     Indication: Immunisation
     Route: 064
     Dates: start: 20210709, end: 20210709
  5. AMPICILLIN SODIUM\SULBACTAM SODIUM [Concomitant]
     Active Substance: AMPICILLIN SODIUM\SULBACTAM SODIUM
     Indication: Amniotic cavity infection
     Dosage: UNK UNK, UNKNOWN
     Route: 064

REACTIONS (6)
  - Fever neonatal [Recovered/Resolved]
  - Dehydration [Recovered/Resolved]
  - Congenital hydronephrosis [Unknown]
  - Congenital megaureter [Unknown]
  - Agitation neonatal [Recovered/Resolved]
  - Foetal exposure during pregnancy [Unknown]

NARRATIVE: CASE EVENT DATE: 20210901
